FAERS Safety Report 10566698 (Version 3)
Quarter: 2014Q4

REPORT INFORMATION
  Report Type: Spontaneous
  Country: US (occurrence: US)
  Receive Date: 20141105
  Receipt Date: 20141223
  Transmission Date: 20150529
  Serious: Yes (Death)
  Sender: FDA-Public Use
  Company Number: US-INCYTE CORPORATION-2014IN003311

PATIENT
  Age: 84 Year
  Sex: Male
  Weight: 81.63 kg

DRUGS (6)
  1. PROCRIT [Concomitant]
     Active Substance: ERYTHROPOIETIN
     Indication: RENAL FAILURE
  2. LASIX [Concomitant]
     Active Substance: FUROSEMIDE
  3. JAKAFI [Suspect]
     Active Substance: RUXOLITINIB
     Indication: MYELOFIBROSIS
     Dosage: 10 MG, BID
     Route: 048
     Dates: start: 20140913
  4. BETA BLOCKERS [Concomitant]
     Indication: PERIPHERAL VASCULAR DISORDER
  5. BETA BLOCKERS [Concomitant]
     Indication: CORONARY ARTERY DISEASE
  6. COREG [Concomitant]
     Active Substance: CARVEDILOL

REACTIONS (1)
  - Acute myocardial infarction [Fatal]

NARRATIVE: CASE EVENT DATE: 20141027
